FAERS Safety Report 9475211 (Version 1)
Quarter: 2013Q3

REPORT INFORMATION
  Report Type: Spontaneous
  Country: BR (occurrence: BR)
  Receive Date: 20130825
  Receipt Date: 20130825
  Transmission Date: 20140515
  Serious: Yes (Other)
  Sender: FDA-Public Use
  Company Number: BR-MYLANLABS-2013S1018189

PATIENT
  Age: 59 Year
  Sex: Female

DRUGS (8)
  1. RIFAMPICIN [Suspect]
     Indication: TUBERCULOSIS
     Dosage: 600 MG/DAY
     Route: 065
     Dates: end: 20101015
  2. WARFARIN [Interacting]
     Indication: ATRIAL FIBRILLATION
     Dosage: NEARLY 52.5 MG/WEEK (TYPICAL DOSAGE)
     Route: 065
     Dates: start: 200905
  3. WARFARIN [Interacting]
     Indication: ATRIAL FIBRILLATION
     Dosage: 45 MG/WEEK
     Route: 065
     Dates: start: 200905
  4. FERROUS SULFATE [Concomitant]
     Route: 065
  5. HYDROCHLOROTHIAZIDE [Concomitant]
     Route: 065
  6. ENALAPRIL [Concomitant]
     Route: 065
  7. ISONIAZID [Concomitant]
     Indication: TUBERCULOSIS
     Dosage: 400 MG/DAY
     Route: 065
     Dates: end: 20101015
  8. PYRAZINAMIDE [Concomitant]
     Indication: TUBERCULOSIS
     Dosage: 2 G/DAY
     Route: 065

REACTIONS (4)
  - Anticoagulation drug level below therapeutic [Recovered/Resolved]
  - International normalised ratio increased [Recovered/Resolved]
  - Haematuria [Recovered/Resolved]
  - Drug interaction [Recovered/Resolved]
